FAERS Safety Report 7826696-X (Version None)
Quarter: 2011Q4

REPORT INFORMATION
  Report Type: 
  Country: None (occurrence: None)
  Receive Date: 20111020
  Receipt Date: 20111005
  Transmission Date: 20120403
  Serious: Yes (Other)
  Sender: FDA-Public Use
  Company Number: US-BAYER-2011-053155

PATIENT
  Age: 31 Year
  Sex: Female

DRUGS (3)
  1. CHANTIX [Concomitant]
     Indication: EX-TOBACCO USER
     Dosage: 0.5 MG, UNK
     Route: 048
  2. DICLOFENAC POTASSIUM [Concomitant]
     Dosage: 50 MG, UNK
     Route: 048
  3. YAZ [Suspect]
     Indication: CONTRACEPTION
     Dosage: UNK
     Dates: start: 20080101, end: 20100101

REACTIONS (3)
  - CHOLELITHIASIS [None]
  - CHOLECYSTITIS CHRONIC [None]
  - ABDOMINAL ADHESIONS [None]
